FAERS Safety Report 20742293 (Version 3)
Quarter: 2022Q2

REPORT INFORMATION
  Report Type: Spontaneous
  Country: IT (occurrence: IT)
  Receive Date: 20220424
  Receipt Date: 20220607
  Transmission Date: 20220720
  Serious: Yes (Other)
  Sender: FDA-Public Use
  Company Number: IT-AMGEN-ITASP2022067554

PATIENT
  Sex: Female

DRUGS (12)
  1. ADALIMUMAB [Suspect]
     Active Substance: ADALIMUMAB
     Indication: Juvenile idiopathic arthritis
     Dosage: UNK
     Route: 065
  2. ETANERCEPT [Concomitant]
     Active Substance: ETANERCEPT
  3. RITUXIMAB [Concomitant]
     Active Substance: RITUXIMAB
  4. SARILUMAB [Concomitant]
     Active Substance: SARILUMAB
  5. ABATACEPT [Concomitant]
     Active Substance: ABATACEPT
  6. TOCILIZUMAB [Concomitant]
     Active Substance: TOCILIZUMAB
  7. CERTOLIZUMAB [Concomitant]
     Active Substance: CERTOLIZUMAB
  8. METHOTREXATE [Concomitant]
     Active Substance: METHOTREXATE
  9. LEFLUNOMIDE [Concomitant]
     Active Substance: LEFLUNOMIDE
  10. CYCLOSPORINE [Concomitant]
     Active Substance: CYCLOSPORINE
  11. AZATHIOPRINE [Concomitant]
     Active Substance: AZATHIOPRINE
  12. PREDNISONE [Concomitant]
     Active Substance: PREDNISONE

REACTIONS (3)
  - Juvenile idiopathic arthritis [Unknown]
  - Therapeutic product effect incomplete [Unknown]
  - Maternal exposure during pregnancy [Unknown]
